FAERS Safety Report 14949822 (Version 1)
Quarter: 2018Q2

REPORT INFORMATION
  Report Type: Spontaneous
  Country: CH (occurrence: CH)
  Receive Date: 20180530
  Receipt Date: 20180530
  Transmission Date: 20180711
  Serious: Yes (Disabling, Other)
  Sender: FDA-Public Use
  Company Number: CH-AMGEN-CHESP2018071216

PATIENT
  Age: 61 Year
  Sex: Female

DRUGS (2)
  1. VI-DE 3 [Concomitant]
     Active Substance: CHOLECALCIFEROL
     Indication: OSTEOPOROSIS
     Route: 048
  2. PROLIA [Suspect]
     Active Substance: DENOSUMAB
     Indication: OSTEOPOROSIS
     Dosage: 60 MG, Q6MO
     Route: 058
     Dates: start: 201201, end: 20160520

REACTIONS (2)
  - Thoracic vertebral fracture [Recovering/Resolving]
  - Rebound effect [Unknown]

NARRATIVE: CASE EVENT DATE: 20170523
